FAERS Safety Report 7397132-5 (Version None)
Quarter: 2011Q2

REPORT INFORMATION
  Report Type: 
  Country: None (occurrence: None)
  Receive Date: 20110406
  Receipt Date: 20110328
  Transmission Date: 20111010
  Serious: Yes (Hospitalization)
  Sender: FDA-Public Use
  Company Number: B0677234A

PATIENT
  Age: 67 Year
  Sex: Male
  Weight: 54 kg

DRUGS (8)
  1. SELEGILINE HCL [Suspect]
     Dosage: 7.5MG PER DAY
     Route: 048
  2. SELEGILINE HYDROCHLORIDE [Suspect]
     Dosage: 7.5MG PER DAY
  3. SIFROL [Suspect]
     Dosage: 3MG PER DAY
     Route: 048
  4. ENTACAPONE [Suspect]
     Dosage: 300MG PER DAY
     Route: 048
  5. ROPINIROLE [Suspect]
     Indication: PARKINSON'S DISEASE
     Dosage: 3G PER DAY
     Route: 048
     Dates: start: 20080925, end: 20081215
  6. PRAMIPEXOLE DIHYDROCHLORIDE [Suspect]
  7. L-DOPA [Suspect]
     Dosage: 300MG PER DAY
     Route: 048
  8. DOPAMINE [Suspect]

REACTIONS (4)
  - PATHOLOGICAL GAMBLING [None]
  - GAIT DISTURBANCE [None]
  - DEPRESSION [None]
  - HYPOKINESIA [None]
